FAERS Safety Report 11021203 (Version 6)
Quarter: 2018Q3

REPORT INFORMATION
  Report Type: Report from Study
  Country: US (occurrence: US)
  Receive Date: 20150413
  Receipt Date: 20180828
  Transmission Date: 20181010
  Serious: Yes (Hospitalization, Other)
  Sender: FDA-Public Use
  Company Number: US-SANOFI-AVENTIS-2013SA030576

PATIENT
  Age: 43 Year
  Sex: Female
  Weight: 63.5 kg

DRUGS (8)
  1. TERIFLUNOMIDE [Suspect]
     Active Substance: TERIFLUNOMIDE
     Dosage: 14 MG,QD
     Route: 048
     Dates: start: 2014, end: 20150317
  2. ZITHROMAX [Concomitant]
     Active Substance: AZITHROMYCIN DIHYDRATE
     Dosage: UNK
  3. TERIFLUNOMIDE [Suspect]
     Active Substance: TERIFLUNOMIDE
     Dosage: 14 MG,QD
     Route: 048
  4. TERIFLUNOMIDE [Suspect]
     Active Substance: TERIFLUNOMIDE
     Indication: MULTIPLE SCLEROSIS
     Dosage: 14 MG,QD
     Route: 048
     Dates: start: 20130121
  5. TERIFLUNOMIDE [Suspect]
     Active Substance: TERIFLUNOMIDE
     Dosage: 14 MG,QD
     Route: 048
  6. AMPYRA [Concomitant]
     Active Substance: DALFAMPRIDINE
     Indication: MULTIPLE SCLEROSIS
     Dosage: 10 MG,BID
  7. TERIFLUNOMIDE [Suspect]
     Active Substance: TERIFLUNOMIDE
     Dosage: 14 MG,QD
     Route: 048
     Dates: start: 20130121
  8. DETROL LA [Concomitant]
     Active Substance: TOLTERODINE TARTRATE
     Indication: BLADDER DISORDER
     Dosage: 4 MG,QD

REACTIONS (15)
  - Therapeutic response unexpected [Unknown]
  - Memory impairment [Not Recovered/Not Resolved]
  - Road traffic accident [Unknown]
  - Spinal deformity [Unknown]
  - Nerve root compression [Unknown]
  - Sinusitis [Recovered/Resolved]
  - Micturition urgency [Not Recovered/Not Resolved]
  - Urinary tract infection [Not Recovered/Not Resolved]
  - Muscle spasms [Not Recovered/Not Resolved]
  - Pollakiuria [Not Recovered/Not Resolved]
  - Nasal congestion [Not Recovered/Not Resolved]
  - Hepatic enzyme increased [Recovered/Resolved]
  - Pain [Recovered/Resolved]
  - Incontinence [Not Recovered/Not Resolved]
  - Hysterectomy [Unknown]

NARRATIVE: CASE EVENT DATE: 20130331
